FAERS Safety Report 7110466-4 (Version None)
Quarter: 2010Q4

REPORT INFORMATION
  Report Type: 
  Country: None (occurrence: None)
  Receive Date: 20101118
  Receipt Date: 20101109
  Transmission Date: 20110411
  Serious: Yes (Hospitalization, Other)
  Sender: FDA-Public Use
  Company Number: BR-GENENTECH-309748

PATIENT
  Sex: Female
  Weight: 60 kg

DRUGS (7)
  1. RITUXIMAB [Suspect]
     Indication: RHEUMATOID ARTHRITIS
     Dosage: 1000 MG, UNK
     Route: 050
     Dates: start: 20081119, end: 20081204
  2. RITUXIMAB [Suspect]
     Dosage: 1000 MG, UNK
     Route: 050
     Dates: start: 20100602, end: 20100616
  3. CALCIUM [Concomitant]
     Indication: PRODUCT USED FOR UNKNOWN INDICATION
     Dosage: UNK
  4. SYNTHROID [Concomitant]
     Indication: PRODUCT USED FOR UNKNOWN INDICATION
     Dosage: 25 A?G, UNK
  5. DEFLAZACORT [Concomitant]
     Indication: PRODUCT USED FOR UNKNOWN INDICATION
     Dosage: 6 MG, UNK
  6. CAL D [Concomitant]
     Indication: PRODUCT USED FOR UNKNOWN INDICATION
     Dosage: 400 MG, UNK
  7. DAFLON [Concomitant]
     Indication: PRODUCT USED FOR UNKNOWN INDICATION
     Dosage: 500 MG, UNK

REACTIONS (7)
  - HYPERSENSITIVITY [None]
  - HYPOAESTHESIA [None]
  - LIP PRURITUS [None]
  - OEDEMA PERIPHERAL [None]
  - PALATAL DISORDER [None]
  - PRURITUS [None]
  - TENDON DISORDER [None]
